FAERS Safety Report 14873015 (Version 1)
Quarter: 2018Q2

REPORT INFORMATION
  Report Type: Spontaneous
  Country: PL (occurrence: PL)
  Receive Date: 20180510
  Receipt Date: 20180510
  Transmission Date: 20180711
  Serious: Yes (Death, Hospitalization, Other)
  Sender: FDA-Public Use
  Company Number: PL-APOTEX-2018AP013444

PATIENT
  Age: 59 Year
  Sex: Male

DRUGS (3)
  1. MYCOPHENOLATE [Suspect]
     Active Substance: MYCOPHENOLIC ACID
     Indication: IMMUNOSUPPRESSION
     Route: 065
  2. TACROLIMUS. [Suspect]
     Active Substance: TACROLIMUS
     Indication: IMMUNOSUPPRESSION
     Route: 065
  3. METHYLPREDNISOLONE. [Suspect]
     Active Substance: METHYLPREDNISOLONE
     Indication: IMMUNOSUPPRESSION
     Route: 065

REACTIONS (6)
  - Staphylococcus test positive [Fatal]
  - Multiple organ dysfunction syndrome [Fatal]
  - Pneumonia influenzal [Fatal]
  - Septic shock [Fatal]
  - Acute respiratory distress syndrome [Fatal]
  - Respiratory failure [Fatal]
